FAERS Safety Report 9246915 (Version 2)
Quarter: 2013Q2

REPORT INFORMATION
  Report Type: Spontaneous
  Country: DE (occurrence: DE)
  Receive Date: 20130422
  Receipt Date: 20130516
  Transmission Date: 20140414
  Serious: Yes (Hospitalization)
  Sender: FDA-Public Use
  Company Number: DE-GLAXOSMITHKLINE-D0079497A

PATIENT
  Sex: Male

DRUGS (3)
  1. REQUIP [Suspect]
     Indication: PARKINSONISM
     Route: 048
  2. STALEVO [Suspect]
     Indication: PARKINSONISM
     Route: 048
     Dates: start: 2010
  3. ERGOTAMINE [Suspect]
     Indication: PARKINSONISM
     Route: 065

REACTIONS (4)
  - Mobility decreased [Not Recovered/Not Resolved]
  - Fall [Unknown]
  - Dysstasia [Not Recovered/Not Resolved]
  - Hypotension [Recovered/Resolved]
